FAERS Safety Report 20830368 (Version 2)
Quarter: 2022Q2

REPORT INFORMATION
  Report Type: Spontaneous
  Country: US (occurrence: US)
  Receive Date: 20220514
  Receipt Date: 20220628
  Transmission Date: 20220721
  Serious: No
  Sender: FDA-Public Use
  Company Number: US-BRISTOL-MYERS SQUIBB COMPANY-2022-032578

PATIENT
  Age: 71 Year
  Sex: Male

DRUGS (1)
  1. REVLIMID [Suspect]
     Active Substance: LENALIDOMIDE
     Indication: Plasma cell myeloma
     Dosage: FREQUENCY : TAKE 1 CAPSULE (10 MG TOTAL) BY MOUTH DAILY FOR 14 DAYS
     Route: 048

REACTIONS (5)
  - Nausea [Unknown]
  - Rash [Unknown]
  - Illness [Unknown]
  - Product distribution issue [Unknown]
  - Product prescribing issue [Unknown]
